FAERS Safety Report 25477582 (Version 1)
Quarter: 2025Q2

REPORT INFORMATION
  Report Type: Spontaneous
  Country: US (occurrence: US)
  Receive Date: 20250625
  Receipt Date: 20250625
  Transmission Date: 20250717
  Serious: No
  Sender: ALCON
  Company Number: US-ALCON LABORATORIES-ALC2024US003088

PATIENT
  Age: 64 Year
  Sex: Female

DRUGS (2)
  1. PATADAY ONCE DAILY RELIEF [Suspect]
     Active Substance: OLOPATADINE HYDROCHLORIDE
     Indication: Product used for unknown indication
     Route: 047
  2. Pataday twice daily relief [Concomitant]
     Indication: Product used for unknown indication
     Route: 047

REACTIONS (2)
  - Wrong product administered [Unknown]
  - Vision blurred [Recovered/Resolved]
